FAERS Safety Report 14928340 (Version 1)
Quarter: 2018Q2

REPORT INFORMATION
  Report Type: Report from Study
  Country: US (occurrence: US)
  Receive Date: 20180523
  Receipt Date: 20180523
  Transmission Date: 20180711
  Serious: Yes (Hospitalization)
  Sender: FDA-Public Use
  Company Number: US-BAYER-2018-089712

PATIENT
  Age: 75 Year
  Sex: Female

DRUGS (1)
  1. STIVARGA [Suspect]
     Active Substance: REGORAFENIB
     Indication: COLORECTAL CANCER
     Dosage: 160 MG, QD
     Route: 048
     Dates: start: 20180502, end: 20180509

REACTIONS (5)
  - Fatigue [None]
  - Dehydration [None]
  - Hepatic pain [None]
  - Constipation [None]
  - Pain [None]

NARRATIVE: CASE EVENT DATE: 201805
